FAERS Safety Report 21054906 (Version 1)
Quarter: 2022Q3

REPORT INFORMATION
  Report Type: Report from Study
  Country: RU (occurrence: RU)
  Receive Date: 20220707
  Receipt Date: 20220707
  Transmission Date: 20221026
  Serious: Yes (Death, Hospitalization, Other)
  Sender: FDA-Public Use
  Company Number: RU-BRISTOL-MYERS SQUIBB COMPANY-2022-041679

PATIENT
  Age: 78 Year
  Sex: Female
  Weight: 64 kg

DRUGS (17)
  1. CARBOPLATIN [Suspect]
     Active Substance: CARBOPLATIN
     Indication: Non-small cell lung cancer
     Dosage: MOST RECENT DOSE OF 160MG WAS RECEIVED ON 15-FEB-2022
     Route: 065
     Dates: start: 20220117
  2. PACLITAXEL [Suspect]
     Active Substance: PACLITAXEL
     Indication: Non-small cell lung cancer
     Dosage: MOST RECENT DOSE OF 85MG WAS RECEIVED ON 15-FEB-2022
     Route: 042
     Dates: start: 20220117
  3. MAGNESIUM ASPARTATE\POTASSIUM ASPARTATE [Concomitant]
     Active Substance: MAGNESIUM ASPARTATE\POTASSIUM ASPARTATE
     Indication: Product used for unknown indication
     Dosage: 1 DF- 1 UNIT NOS
     Route: 048
     Dates: start: 20220408, end: 20220601
  4. MAGNESIUM ASPARTATE\POTASSIUM ASPARTATE [Concomitant]
     Active Substance: MAGNESIUM ASPARTATE\POTASSIUM ASPARTATE
  5. ATORVASTATIN CALCIUM [Concomitant]
     Active Substance: ATORVASTATIN CALCIUM
     Indication: Product used for unknown indication
     Route: 048
     Dates: start: 20220408, end: 20220630
  6. ATORVASTATIN CALCIUM [Concomitant]
     Active Substance: ATORVASTATIN CALCIUM
  7. BISOPROLOL [Concomitant]
     Active Substance: BISOPROLOL
     Indication: Product used for unknown indication
     Route: 048
     Dates: start: 20220408, end: 20220428
  8. BISOPROLOL [Concomitant]
     Active Substance: BISOPROLOL
  9. DEXTRIFERRON [Concomitant]
     Active Substance: DEXTRIFERRON
     Indication: Product used for unknown indication
     Route: 048
     Dates: start: 20220415, end: 20220419
  10. APIXABAN [Concomitant]
     Active Substance: APIXABAN
     Indication: Product used for unknown indication
     Route: 048
     Dates: start: 20220320, end: 20220428
  11. FLUIFORT [CARBOCISTEINE LYSINE] [Concomitant]
     Indication: Product used for unknown indication
     Dosage: 1 DF- 1 UNIT NOS
     Route: 048
     Dates: start: 20220408, end: 20220428
  12. PANTOPRAZOLE SODIUM [Concomitant]
     Active Substance: PANTOPRAZOLE SODIUM
     Indication: Prophylaxis
     Route: 048
     Dates: start: 20220408, end: 20220411
  13. INDAPAMIDE\PERINDOPRIL [Concomitant]
     Active Substance: INDAPAMIDE\PERINDOPRIL
     Indication: Product used for unknown indication
     Dosage: PERINDOPRIL + INDAPAMID (5+1.25 MG)?1 DF- 1 UNIT NOS
     Route: 048
     Dates: start: 20220408, end: 20220428
  14. EUTHYROX [Concomitant]
     Active Substance: LEVOTHYROXINE SODIUM
     Indication: Thyroiditis
     Route: 048
     Dates: start: 20220409, end: 20220428
  15. PREDNISOLONE ACETATE [Concomitant]
     Active Substance: PREDNISOLONE ACETATE
     Indication: Product used for unknown indication
     Route: 048
     Dates: start: 20220412, end: 20220428
  16. OMEPRAZOLE [Concomitant]
     Active Substance: OMEPRAZOLE
     Indication: Prophylaxis
     Route: 048
     Dates: start: 20220412, end: 20220528
  17. OMEPRAZOLE [Concomitant]
     Active Substance: OMEPRAZOLE
     Route: 065
     Dates: start: 20220412, end: 20220511

REACTIONS (2)
  - Myopericarditis [Recovered/Resolved]
  - Death [Fatal]

NARRATIVE: CASE EVENT DATE: 20220424
